FAERS Safety Report 6526060-X (Version None)
Quarter: 2010Q1

REPORT INFORMATION
  Report Type: 
  Country: None (occurrence: None)
  Receive Date: 20100104
  Receipt Date: 20091221
  Transmission Date: 20100710
  Serious: Yes (Hospitalization)
  Sender: FDA-Public Use
  Company Number: JP-MYLANLABS-2009S1021708

PATIENT
  Age: 40 Year
  Sex: Male

DRUGS (5)
  1. NORTRIPTYLINE [Suspect]
     Indication: DEPRESSION
  2. MIANSERIN [Concomitant]
     Indication: DEPRESSION
  3. SERTRALINE HCL [Concomitant]
     Indication: DEPRESSION
  4. BROTIZOLAM [Concomitant]
     Indication: DEPRESSION
  5. AMANTADINE HCL [Concomitant]
     Indication: DEPRESSION

REACTIONS (1)
  - BRUGADA SYNDROME [None]
